FAERS Safety Report 5315254-7 (Version None)
Quarter: 2007Q2

REPORT INFORMATION
  Report Type: 
  Country: None (occurrence: None)
  Receive Date: 20070426
  Receipt Date: 20070416
  Transmission Date: 20071010
  Serious: Yes (Hospitalization)
  Sender: FDA-Public Use
  Company Number: 2007BI005103

PATIENT
  Age: 73 Year
  Sex: Female

DRUGS (9)
  1. AVONEX [Suspect]
     Indication: MULTIPLE SCLEROSIS
     Dosage: 30 UG QW IM
     Route: 030
     Dates: start: 20041001
  2. NOVOLOG [Concomitant]
  3. HYDROCHLOROTHIAZIDE [Concomitant]
  4. POTASSIUM CHLORIDE [Concomitant]
  5. ATENOLOL [Concomitant]
  6. SYNTHROID [Concomitant]
  7. NEURONTIN [Concomitant]
  8. LORAZEPAM [Concomitant]
  9. DARVOCET-N 100 [Concomitant]

REACTIONS (7)
  - ATRIAL FIBRILLATION [None]
  - CEREBROVASCULAR ACCIDENT [None]
  - DIABETES MELLITUS [None]
  - DISEASE PROGRESSION [None]
  - HYPERTENSION [None]
  - HYPOTHYROIDISM [None]
  - MULTIPLE SCLEROSIS RELAPSE [None]
